FAERS Safety Report 9641695 (Version 2)
Quarter: 2013Q4

REPORT INFORMATION
  Report Type: Spontaneous
  Country: FR (occurrence: FR)
  Receive Date: 20131023
  Receipt Date: 20131023
  Transmission Date: 20140711
  Serious: Yes (Other)
  Sender: FDA-Public Use
  Company Number: FR-TEVA-387675ISR

PATIENT
  Sex: Female

DRUGS (4)
  1. COPAXONE [Suspect]
     Indication: MULTIPLE SCLEROSIS
     Dosage: 20 MG/ML DAILY;
     Route: 058
     Dates: start: 20080323
  2. COSOPT [Concomitant]
     Indication: INTRAOCULAR PRESSURE TEST
     Dosage: DROPS IN THE MORNING AND IN THE EVENING
  3. IXPRIM [Concomitant]
     Indication: PAIN IN EXTREMITY
  4. HORMONAL TREATMENT [Concomitant]
     Dates: end: 2012

REACTIONS (10)
  - Injection site pruritus [Unknown]
  - Balance disorder [Recovered/Resolved]
  - Visual impairment [Not Recovered/Not Resolved]
  - Injection site erythema [Unknown]
  - Injection site atrophy [Not Recovered/Not Resolved]
  - Injection site induration [Not Recovered/Not Resolved]
  - Injection site haematoma [Unknown]
  - Hot flush [Unknown]
  - Injection site pain [Unknown]
  - Injection site swelling [Not Recovered/Not Resolved]
